FAERS Safety Report 7656772-6 (Version None)
Quarter: 2011Q3

REPORT INFORMATION
  Report Type: 
  Country: None (occurrence: None)
  Receive Date: 20110804
  Receipt Date: 20110802
  Transmission Date: 20111222
  Serious: Yes (Hospitalization)
  Sender: FDA-Public Use
  Company Number: JP-PFIZER INC-2011176568

PATIENT
  Age: 79 Year
  Sex: Female
  Weight: 55 kg

DRUGS (8)
  1. EVISTA [Concomitant]
     Dosage: UNK
  2. PROCYLIN [Concomitant]
     Dosage: UNK
  3. LYRICA [Suspect]
     Indication: SCIATICA
     Dosage: 75 MG A DAY
     Route: 048
     Dates: start: 20110405, end: 20110406
  4. NEUROTROPIN [Concomitant]
     Dosage: UNK
  5. LIPOVAS ^BANYU^ [Concomitant]
     Dosage: UNK
  6. GLUFAST [Concomitant]
     Dosage: UNK
  7. MICARDIS [Concomitant]
     Dosage: UNK
  8. DIAZEPAM [Concomitant]
     Dosage: UNK

REACTIONS (2)
  - ALTERED STATE OF CONSCIOUSNESS [None]
  - ASTHENIA [None]
